FAERS Safety Report 7387269-9 (Version None)
Quarter: 2011Q1

REPORT INFORMATION
  Report Type: 
  Country: None (occurrence: None)
  Receive Date: 20110331
  Receipt Date: 20110329
  Transmission Date: 20110831
  Serious: Yes (Other)
  Sender: FDA-Public Use
  Company Number: AT-PFIZER INC-2011069264

PATIENT
  Age: 55 Year
  Sex: Male

DRUGS (1)
  1. SORTIS [Suspect]
     Dosage: 40 MG, UNK
     Route: 048

REACTIONS (1)
  - BURN OESOPHAGEAL [None]
